FAERS Safety Report 8531662-5 (Version None)
Quarter: 2012Q3

REPORT INFORMATION
  Report Type: 
  Country: None (occurrence: None)
  Receive Date: 20120723
  Receipt Date: 20120628
  Transmission Date: 20120928
  Serious: No
  Sender: FDA-Public Use
  Company Number: US-ASTRAZENECA-2012SE44460

PATIENT
  Age: 62 Year
  Sex: Female

DRUGS (3)
  1. CRESTOR [Suspect]
     Route: 048
  2. AZITHROMYCIN [Concomitant]
  3. SUPRAX [Concomitant]

REACTIONS (5)
  - PAIN IN JAW [None]
  - SINUS HEADACHE [None]
  - SINUSITIS [None]
  - HEADACHE [None]
  - SINUS CONGESTION [None]
